FAERS Safety Report 12184897 (Version 3)
Quarter: 2016Q3

REPORT INFORMATION
  Report Type: Spontaneous
  Country: US (occurrence: US)
  Receive Date: 20160316
  Receipt Date: 20160802
  Transmission Date: 20161109
  Serious: Yes (Other)
  Sender: FDA-Public Use
  Company Number: US-TEVA-642470USA

PATIENT
  Age: 30 Year
  Sex: Male

DRUGS (1)
  1. ZECUITY [Suspect]
     Active Substance: SUMATRIPTAN SUCCINATE
     Indication: MIGRAINE
     Route: 062
     Dates: start: 201602, end: 201602

REACTIONS (7)
  - Application site paraesthesia [Unknown]
  - Application site vesicles [Recovered/Resolved]
  - Application site burn [Recovered/Resolved with Sequelae]
  - Application site scar [Recovered/Resolved with Sequelae]
  - Application site erythema [Unknown]
  - Application site discolouration [Not Recovered/Not Resolved]
  - Product adhesion issue [Unknown]

NARRATIVE: CASE EVENT DATE: 201602
